FAERS Safety Report 10082489 (Version 3)
Quarter: 2014Q2

REPORT INFORMATION
  Report Type: Report from Study
  Country: US (occurrence: US)
  Receive Date: 20140416
  Receipt Date: 20140520
  Transmission Date: 20141212
  Serious: Yes (Hospitalization, Other)
  Sender: FDA-Public Use
  Company Number: US-BIOGENIDEC-2014BI034560

PATIENT
  Age: 31 Year
  Sex: Female
  Weight: 52 kg

DRUGS (9)
  1. AVONEX [Suspect]
     Indication: RELAPSING-REMITTING MULTIPLE SCLEROSIS
     Route: 030
     Dates: start: 1998, end: 2008
  2. HYDROCODONE-IBUPROFEN [Concomitant]
     Route: 048
  3. BACLOFEN [Concomitant]
     Route: 048
  4. FIORICET [Concomitant]
     Route: 048
  5. PROMETHAZINE-HYDROCHLORIDE [Concomitant]
     Route: 048
  6. AMBIEN [Concomitant]
     Route: 048
  7. DIAZEPAM [Concomitant]
     Route: 048
  8. ZOFRAN [Concomitant]
     Route: 048
  9. LUNESTA [Concomitant]
     Indication: MIDDLE INSOMNIA
     Route: 048

REACTIONS (15)
  - Post-traumatic epilepsy [Not Recovered/Not Resolved]
  - Coma [Recovered/Resolved]
  - Central venous catheterisation [Recovered/Resolved]
  - Multiple sclerosis [Not Recovered/Not Resolved]
  - White blood cell count increased [Not Recovered/Not Resolved]
  - Hypoaesthesia [Not Recovered/Not Resolved]
  - Stress [Unknown]
  - Mobility decreased [Recovered/Resolved]
  - Gait disturbance [Not Recovered/Not Resolved]
  - Optic neuritis [Not Recovered/Not Resolved]
  - Abasia [Unknown]
  - Agraphia [Not Recovered/Not Resolved]
  - Emotional disorder [Unknown]
  - Drug ineffective [Unknown]
  - Malaise [Recovered/Resolved]
